FAERS Safety Report 19790978 (Version 1)
Quarter: 2021Q3

REPORT INFORMATION
  Report Type: Spontaneous
  Country: US (occurrence: US)
  Receive Date: 20210906
  Receipt Date: 20210906
  Transmission Date: 20211014
  Serious: No
  Sender: FDA-Public Use
  Company Number: US-TEVA-2021-US-1947963

PATIENT
  Sex: Female

DRUGS (2)
  1. ALPRAZOLAM TEVA [Suspect]
     Active Substance: ALPRAZOLAM
     Indication: ANXIETY
     Route: 065
     Dates: start: 202108
  2. DIAZEPAM TEVA [Suspect]
     Active Substance: DIAZEPAM
     Indication: ANXIETY
     Route: 065
     Dates: start: 202108

REACTIONS (5)
  - Headache [Unknown]
  - Product substitution issue [Unknown]
  - Drug ineffective [Unknown]
  - Restlessness [Unknown]
  - Discomfort [Unknown]

NARRATIVE: CASE EVENT DATE: 202108
